FAERS Safety Report 7322196-4 (Version None)
Quarter: 2011Q1

REPORT INFORMATION
  Report Type: 
  Country: None (occurrence: None)
  Receive Date: 20110228
  Receipt Date: 20110222
  Transmission Date: 20110831
  Serious: Yes (Other)
  Sender: FDA-Public Use
  Company Number: FR-BRISTOL-MYERS SQUIBB COMPANY-15562580

PATIENT
  Age: 50 Year
  Sex: Female
  Weight: 79 kg

DRUGS (8)
  1. EPIRUBICIN [Suspect]
     Indication: BREAST CANCER
     Dosage: LAST DOSE-188MG
     Dates: start: 20090626, end: 20090810
  2. SOLU-MEDROL [Suspect]
     Indication: BREAST CANCER
     Dosage: LAST DOSE-80MG; INJ
     Dates: start: 20090626, end: 20090810
  3. POLARAMINE [Concomitant]
     Indication: ANTIALLERGIC THERAPY
     Route: 048
     Dates: start: 20090831, end: 20090921
  4. ZOPHREN [Concomitant]
     Indication: NAUSEA
     Dosage: INJ
     Dates: start: 20090626, end: 20090926
  5. IXABEPILONE [Suspect]
     Indication: BREAST CANCER
     Dosage: LAST DOSE-77.08MG
     Route: 042
     Dates: start: 20090831, end: 20090921
  6. ENDOXAN [Suspect]
     Indication: BREAST CANCER
     Dosage: INJ; LAST DOSE-940MG
     Dates: start: 20090626, end: 20090810
  7. FLUOROURACIL [Suspect]
     Indication: BREAST CANCER
     Dosage: LAST DOSE-950MG; INJ
     Dates: start: 20090626, end: 20090810
  8. ZANTAC [Concomitant]
     Indication: ANTIALLERGIC THERAPY
     Route: 048
     Dates: start: 20090831, end: 20090921

REACTIONS (1)
  - PERIPHERAL SENSORY NEUROPATHY [None]
